FAERS Safety Report 4743942-X (Version None)
Quarter: 2005Q3

REPORT INFORMATION
  Report Type: 
  Country: None (occurrence: None)
  Receive Date: 20050809
  Receipt Date: 20050729
  Transmission Date: 20060218
  Serious: Yes (Death)
  Sender: FDA-Public Use
  Company Number: HQWYE596029JUL05

PATIENT
  Age: 81 Year
  Sex: Female

DRUGS (4)
  1. EUPANTOL (PANTOPRAZOLE, INJECTION) [Suspect]
     Dosage: 40 MG 1X PER 1 DAY
     Route: 042
  2. CANCIDAS [Suspect]
     Dosage: 50 MG 1X PER 1 DAY
     Route: 042
     Dates: start: 20050611, end: 20050623
  3. SYNERCID (QUINUPRITIN/DALFOPRISTIN, INJECTION) [Suspect]
     Dosage: 500 MG 3X PER 1 DAY
     Route: 042
     Dates: end: 20050623
  4. TARGOCID [Suspect]
     Dosage: 600 MG 2X PER 1 DAY
     Route: 042
     Dates: start: 20050608, end: 20050626

REACTIONS (10)
  - COAGULATION FACTOR V LEVEL DECREASED [None]
  - CYTOLYTIC HEPATITIS [None]
  - HAEMOGLOBIN DECREASED [None]
  - HEPATIC ARTERY THROMBOSIS [None]
  - HEPATIC FAILURE [None]
  - HYPERAMMONAEMIA [None]
  - LACTIC ACIDOSIS [None]
  - PLATELET COUNT DECREASED [None]
  - PROTHROMBIN LEVEL DECREASED [None]
  - RENAL IMPAIRMENT [None]
